APPROVED DRUG PRODUCT: BRIVARACETAM
Active Ingredient: BRIVARACETAM
Strength: 100MG
Dosage Form/Route: TABLET;ORAL
Application: A214748 | Product #005 | TE Code: AB
Applicant: SUNSHINE LAKE PHARMA CO LTD
Approved: Jun 9, 2022 | RLD: No | RS: No | Type: RX